FAERS Safety Report 24378604 (Version 1)
Quarter: 2024Q3

REPORT INFORMATION
  Report Type: Spontaneous
  Country: US (occurrence: US)
  Receive Date: 20240930
  Receipt Date: 20240930
  Transmission Date: 20241016
  Serious: No
  Sender: PAREXEL
  Company Number: US-Coherus Biosciences INC-2024-COH-US000641

PATIENT

DRUGS (2)
  1. YUSIMRY [Suspect]
     Active Substance: ADALIMUMAB-AQVH
     Indication: Rheumatoid arthritis
     Dosage: UNK, Q2WEEKS
     Route: 058
     Dates: start: 20240719
  2. IBUPROFEN [Concomitant]
     Active Substance: IBUPROFEN
     Dosage: 200 MG, PRN

REACTIONS (3)
  - Accidental exposure to product [Not Recovered/Not Resolved]
  - Device malfunction [Not Recovered/Not Resolved]
  - Product dose omission issue [Not Recovered/Not Resolved]

NARRATIVE: CASE EVENT DATE: 20240719
